FAERS Safety Report 19633883 (Version 1)
Quarter: 2021Q3

REPORT INFORMATION
  Report Type: Spontaneous
  Country: US (occurrence: US)
  Receive Date: 20210729
  Receipt Date: 20210729
  Transmission Date: 20211014
  Serious: Yes (Life-Threatening)
  Sender: FDA-Public Use
  Company Number: None

PATIENT
  Age: 64 Year
  Sex: Female
  Weight: 97.2 kg

DRUGS (2)
  1. METOPROLOL TARTRATE 25MG TAB MYLA [Suspect]
     Active Substance: METOPROLOL TARTRATE
     Indication: HYPERTENSION
     Dosage: ?          QUANTITY:2 TABLET(S);?
     Route: 048
     Dates: start: 20151001
  2. METOPROLOL TARTRATE 25MG TAB MYLA [Suspect]
     Active Substance: METOPROLOL TARTRATE
     Indication: CARDIAC FAILURE
     Dosage: ?          QUANTITY:2 TABLET(S);?
     Route: 048
     Dates: start: 20151001

REACTIONS (6)
  - Palpitations [None]
  - Blood pressure increased [None]
  - Dyspepsia [None]
  - Abdominal discomfort [None]
  - Chest pain [None]
  - Suspected product quality issue [None]

NARRATIVE: CASE EVENT DATE: 20210722
